FAERS Safety Report 19419886 (Version 2)
Quarter: 2021Q3

REPORT INFORMATION
  Report Type: Spontaneous
  Country: US (occurrence: US)
  Receive Date: 20210616
  Receipt Date: 20210709
  Transmission Date: 20211014
  Serious: Yes (Hospitalization, Other)
  Sender: FDA-Public Use
  Company Number: US-009507513-2106USA002426

PATIENT
  Age: 67 Year
  Sex: Female

DRUGS (3)
  1. DEXAMETHASONE. [Suspect]
     Active Substance: DEXAMETHASONE
     Indication: GLIOBLASTOMA MULTIFORME
     Dosage: 2 MG EVERY 12 HOURS
  2. SULFAMETHOXAZOLE+TRIMETHOPRIM [Concomitant]
     Active Substance: SULFAMETHOXAZOLE\TRIMETHOPRIM
     Indication: ANTIFUNGAL PROPHYLAXIS
     Dosage: UNK
     Route: 048
  3. TEMODAR [Suspect]
     Active Substance: TEMOZOLOMIDE
     Indication: GLIOBLASTOMA MULTIFORME
     Dosage: 120 MG DAILY FOR 5 DAYS EVERY 4 WEEKS
     Route: 048

REACTIONS (3)
  - Infection susceptibility increased [Unknown]
  - Salmonella bacteraemia [Recovering/Resolving]
  - Arthritis bacterial [Recovering/Resolving]
